FAERS Safety Report 18431501 (Version 1)
Quarter: 2020Q4

REPORT INFORMATION
  Report Type: Report from Study
  Country: DE (occurrence: DE)
  Receive Date: 20201027
  Receipt Date: 20201027
  Transmission Date: 20210114
  Serious: Yes (Hospitalization, Other)
  Sender: FDA-Public Use
  Company Number: DE-TAKEDA-DE202031755

PATIENT

DRUGS (1)
  1. NONACOG GAMMA [Suspect]
     Active Substance: COAGULATION FACTOR IX RECOMBINANT HUMAN
     Indication: FACTOR IX DEFICIENCY
     Dosage: 500 INTERNATIONAL UNIT, 2X A WEEK
     Route: 042
     Dates: start: 20200916

REACTIONS (3)
  - Subdural haematoma [Recovered/Resolved]
  - Skull fracture [Recovered/Resolved]
  - Fall [Recovering/Resolving]

NARRATIVE: CASE EVENT DATE: 20200919
